FAERS Safety Report 24169848 (Version 1)
Quarter: 2024Q3

REPORT INFORMATION
  Report Type: Spontaneous
  Country: FR (occurrence: FR)
  Receive Date: 20240803
  Receipt Date: 20240803
  Transmission Date: 20241016
  Serious: Yes (Other)
  Sender: BAXTER
  Company Number: None

PATIENT
  Age: 70 Year
  Sex: Male

DRUGS (4)
  1. CYCLOPHOSPHAMIDE [Suspect]
     Active Substance: CYCLOPHOSPHAMIDE
     Indication: Peripheral sensorimotor neuropathy
     Route: 042
     Dates: end: 20240610
  2. AMOXICILLIN [Suspect]
     Active Substance: AMOXICILLIN
     Indication: Lung disorder
     Dosage: 0.1 G (GRAM) IN 8 HOURS (DOSAGE TEXT: 1 GRAM 3/DAY)
     Route: 048
     Dates: start: 20240611, end: 20240617
  3. AMOXICILLIN [Suspect]
     Active Substance: AMOXICILLIN
     Dosage: 2 G (GRAM) IN 8 HOURS (DOSAGE TEXT: 2 GRAMS 3/DAY)
     Route: 048
     Dates: start: 20240618
  4. CLAVULANIC ACID [Suspect]
     Active Substance: CLAVULANIC ACID
     Indication: Lung disorder
     Dosage: 125 MG (MILLIGRAM) (DOSAGE TEXT: 125 MG 3/DAY)
     Route: 048
     Dates: start: 20240611

REACTIONS (1)
  - Hepatic cytolysis [Recovering/Resolving]

NARRATIVE: CASE EVENT DATE: 20240619
